FAERS Safety Report 4934034-5 (Version None)
Quarter: 2006Q1

REPORT INFORMATION
  Report Type: 
  Country: None (occurrence: None)
  Receive Date: 20060303
  Receipt Date: 20060215
  Transmission Date: 20060701
  Serious: Yes (Hospitalization)
  Sender: FDA-Public Use
  Company Number: 6020613

PATIENT
  Age: 64 Year
  Sex: Female

DRUGS (4)
  1. LEVOTHYROXINE SODIUM [Suspect]
     Dosage: 12,5 MCG (12,5 MCG, 1 D) ORAL
     Route: 048
     Dates: end: 20051207
  2. OXYCONTIN [Suspect]
     Dosage: 30 MG (30 MG, 1 D) ORAL
     Route: 048
     Dates: start: 20050515, end: 20051204
  3. FOSAMAX [Suspect]
     Dosage: 1 DOSAGE FORMS (1 DOSAGE FORMS, 1 D) ORAL
     Route: 048
  4. CACIT (500 MG, ORAL SOLUTION) (COLECALCIFEROL, CALCIUM CARBONATE) [Suspect]
     Dosage: ORAL
     Route: 048

REACTIONS (1)
  - CONSTIPATION [None]
